FAERS Safety Report 7331396-9 (Version None)
Quarter: 2011Q1

REPORT INFORMATION
  Report Type: 
  Country: None (occurrence: None)
  Receive Date: 20110228
  Receipt Date: 20110228
  Transmission Date: 20110831
  Serious: Yes (Other)
  Sender: FDA-Public Use
  Company Number: None

PATIENT
  Age: 81 Year
  Sex: Male
  Weight: 97.5234 kg

DRUGS (1)
  1. AVALIDE [Suspect]
     Indication: HYPERTENSION
     Dosage: 1 PILL 1X/DAY ORAL
     Route: 048
     Dates: start: 20100201, end: 20110115

REACTIONS (2)
  - BLOOD PRESSURE INCREASED [None]
  - PRODUCT QUALITY ISSUE [None]
